FAERS Safety Report 6532538-5 (Version None)
Quarter: 2010Q1

REPORT INFORMATION
  Report Type: 
  Country: None (occurrence: None)
  Receive Date: 20100111
  Receipt Date: 20091228
  Transmission Date: 20100710
  Serious: Yes (Other)
  Sender: FDA-Public Use
  Company Number: US-JNJFOC-20091207334

PATIENT
  Sex: Female

DRUGS (12)
  1. TOPAMAX [Suspect]
     Indication: CONVULSION
     Dosage: 50 MG TO 100 MG
     Route: 048
  2. TUSSIONEX [Concomitant]
     Indication: COUGH
     Route: 065
  3. TUSSIN (COUGH) [Concomitant]
     Indication: COUGH
     Route: 065
  4. FISH OIL [Concomitant]
     Indication: MEDICAL DIET
     Route: 065
  5. VITAMIN D [Concomitant]
     Indication: MEDICAL DIET
     Route: 065
  6. ESTROGEN [Concomitant]
     Indication: MENOPAUSE
     Route: 065
  7. CYMBALTA [Concomitant]
     Indication: PANIC ATTACK
     Route: 065
  8. HYZAAR [Concomitant]
     Indication: BLOOD PRESSURE
     Route: 065
  9. ALBUTEROL [Concomitant]
     Indication: ASTHMA
     Route: 065
  10. ADVAIR DISKUS 100/50 [Concomitant]
     Indication: ASTHMA
  11. UNKNOWN MEDICATION [Concomitant]
     Indication: LOWER RESPIRATORY TRACT INFLAMMATION
  12. UNKNOWN MEDICATION [Concomitant]
     Indication: PANIC ATTACK

REACTIONS (5)
  - ASTHMA [None]
  - COUGH [None]
  - LOWER RESPIRATORY TRACT INFLAMMATION [None]
  - PANIC ATTACK [None]
  - PNEUMONIA [None]
